FAERS Safety Report 12978561 (Version 5)
Quarter: 2017Q1

REPORT INFORMATION
  Report Type: Spontaneous
  Country: US (occurrence: US)
  Receive Date: 20161128
  Receipt Date: 20170321
  Transmission Date: 20170428
  Serious: No
  Sender: FDA-Public Use
  Company Number: US-PFIZER INC-2016546172

PATIENT
  Age: 87 Year
  Sex: Female

DRUGS (16)
  1. DEPO-MEDROL [Suspect]
     Active Substance: METHYLPREDNISOLONE ACETATE
     Dosage: UNK
     Dates: start: 20150427
  2. LIDOCAINE HCL [Suspect]
     Active Substance: LIDOCAINE HYDROCHLORIDE
     Dosage: 8 ML, UNK (DEPO MEDROL 80MG IN 8CC OF LIDOCAINE)
     Route: 008
     Dates: start: 201509
  3. DEPO-MEDROL [Suspect]
     Active Substance: METHYLPREDNISOLONE ACETATE
     Indication: SCOLIOSIS
     Dosage: 80 MG, UNK, (DEPO MEDROL 80MG IN 8CC OF LIDOCAINE) IN HER BACK
     Route: 008
     Dates: start: 2013
  4. LIDOCAINE HCL [Suspect]
     Active Substance: LIDOCAINE HYDROCHLORIDE
     Indication: SCOLIOSIS
     Dosage: 8 ML, UNK (DEPO MEDROL 80MG IN 8CC OF LIDOCAIN))
     Route: 008
     Dates: start: 201507
  5. DEPO-MEDROL [Suspect]
     Active Substance: METHYLPREDNISOLONE ACETATE
     Dosage: 80 MG, UNK(DEPO MEDROL 80MG IN 8CC OF LIDOCAINE)
     Route: 008
     Dates: start: 201507
  6. DEPO-MEDROL [Suspect]
     Active Substance: METHYLPREDNISOLONE ACETATE
     Dosage: 80 MG, UNK(DEPO MEDROL 80MG IN 8CC OF LIDOCAINE)
     Route: 008
     Dates: start: 201508
  7. DEPO-MEDROL [Suspect]
     Active Substance: METHYLPREDNISOLONE ACETATE
     Dosage: UNK
     Dates: start: 201601
  8. LIDOCAINE HCL [Suspect]
     Active Substance: LIDOCAINE HYDROCHLORIDE
     Indication: ARTHRITIS
     Dosage: 8 ML, UNK(DEPO MEDROL 80MG IN 8CC OF LIDOCAINE)
     Route: 008
     Dates: start: 2013
  9. CORTISONE ACETATE. [Suspect]
     Active Substance: CORTISONE ACETATE
     Indication: ARTHRITIS
     Dosage: UNK
     Dates: start: 201505
  10. DEPO-MEDROL [Suspect]
     Active Substance: METHYLPREDNISOLONE ACETATE
     Dosage: UNK
     Dates: start: 20150411
  11. LIDOCAINE HCL [Suspect]
     Active Substance: LIDOCAINE HYDROCHLORIDE
     Indication: SPINAL COLUMN STENOSIS
     Dosage: 8 ML, UNK (DEPO MEDROL 80MG IN 8CC OF LIDOCAINE)
     Route: 008
     Dates: start: 201508
  12. CORTISONE ACETATE. [Suspect]
     Active Substance: CORTISONE ACETATE
     Indication: SCOLIOSIS
     Dosage: UNK
     Dates: start: 201506
  13. CORTISONE ACETATE. [Suspect]
     Active Substance: CORTISONE ACETATE
     Indication: MUSCULOSKELETAL PAIN
     Dosage: UNK
     Dates: start: 201507
  14. DEPO-MEDROL [Suspect]
     Active Substance: METHYLPREDNISOLONE ACETATE
     Indication: ARTHRITIS
     Dosage: 80 MG, IN SHOULDER
     Route: 008
     Dates: start: 20131022
  15. DEPO-MEDROL [Suspect]
     Active Substance: METHYLPREDNISOLONE ACETATE
     Indication: SPINAL COLUMN STENOSIS
     Dosage: UNK
     Dates: start: 20140811
  16. DEPO-MEDROL [Suspect]
     Active Substance: METHYLPREDNISOLONE ACETATE
     Dosage: 80 MG, UNK(DEPO MEDROL 80MG IN 8CC OF LIDOCAINE)
     Route: 008
     Dates: start: 201509

REACTIONS (3)
  - Drug ineffective [Not Recovered/Not Resolved]
  - Product use issue [Unknown]
  - Wrong technique in product usage process [Unknown]

NARRATIVE: CASE EVENT DATE: 201309
